FAERS Safety Report 21110579 (Version 1)
Quarter: 2022Q3

REPORT INFORMATION
  Report Type: Spontaneous
  Country: US (occurrence: None)
  Receive Date: 20220720
  Receipt Date: 20220720
  Transmission Date: 20221027
  Serious: Yes (Hospitalization)
  Sender: FDA-Public Use
  Company Number: None

PATIENT
  Age: 74 Year
  Sex: Female

DRUGS (1)
  1. CAPECITABINE [Suspect]
     Active Substance: CAPECITABINE
     Dosage: 1000MG BID ORAL?
     Route: 048
     Dates: start: 202106

REACTIONS (5)
  - Fall [None]
  - Hip fracture [None]
  - Wrist fracture [None]
  - Pelvic fracture [None]
  - Pain [None]

NARRATIVE: CASE EVENT DATE: 20220621
